FAERS Safety Report 25470434 (Version 1)
Quarter: 2025Q2

REPORT INFORMATION
  Report Type: Spontaneous
  Country: US (occurrence: US)
  Receive Date: 20250624
  Receipt Date: 20250624
  Transmission Date: 20250716
  Serious: No
  Sender: ALKEM
  Company Number: US-ALKEM LABORATORIES LIMITED-US-ALKEM-2024-23497

PATIENT
  Sex: Female
  Weight: 136.05 kg

DRUGS (3)
  1. AMLODIPINE BESYLATE [Suspect]
     Active Substance: AMLODIPINE BESYLATE
     Indication: Blood pressure abnormal
     Route: 048
     Dates: start: 20240927
  2. Vitamin C and Potassium [Concomitant]
     Indication: Product used for unknown indication
     Route: 065
  3. METHAZOLAMIDE [Concomitant]
     Active Substance: METHAZOLAMIDE
     Indication: Product used for unknown indication
     Route: 065

REACTIONS (1)
  - Drug ineffective [Unknown]
